FAERS Safety Report 9283399 (Version 1)
Quarter: 2013Q2

REPORT INFORMATION
  Report Type: Spontaneous
  Country: US (occurrence: US)
  Receive Date: 20130510
  Receipt Date: 20130510
  Transmission Date: 20140414
  Serious: No
  Sender: FDA-Public Use
  Company Number: US-GLAXOSMITHKLINE-A1005387A

PATIENT
  Age: 34 Year
  Sex: Female

DRUGS (8)
  1. TYKERB [Suspect]
     Indication: BREAST CANCER
     Dosage: 6TAB PER DAY
     Route: 048
     Dates: start: 20121206
  2. GABAPENTIN [Concomitant]
  3. TRAMADOL [Concomitant]
  4. HYDROXYETHYLTHEOPHYLLINE [Concomitant]
  5. SULINDAC [Concomitant]
  6. VITAMIN B COMPLEX [Concomitant]
  7. MSM [Concomitant]
     Indication: SUPPLEMENTATION THERAPY
  8. MULTIVITAMIN [Concomitant]

REACTIONS (2)
  - Abdominal pain upper [Recovered/Resolved]
  - Diarrhoea [Unknown]
